FAERS Safety Report 12360065 (Version 2)
Quarter: 2016Q2

REPORT INFORMATION
  Report Type: Spontaneous
  Country: ES (occurrence: ES)
  Receive Date: 20160512
  Receipt Date: 20160523
  Transmission Date: 20160815
  Serious: Yes (Other)
  Sender: FDA-Public Use
  Company Number: ES-GILEAD-2016-0212973

PATIENT
  Age: 44 Year
  Sex: Female
  Weight: 81 kg

DRUGS (10)
  1. ESPIRONOLACTONA [Concomitant]
     Active Substance: SPIRONOLACTONE
  2. GABAPENTINA [Concomitant]
     Active Substance: GABAPENTIN
  3. NORFLOXACINO [Suspect]
     Active Substance: NORFLOXACIN
     Indication: ANTIBIOTIC PROPHYLAXIS
     Dosage: UNK
     Route: 048
     Dates: start: 20160212, end: 20160420
  4. HARVONI [Suspect]
     Active Substance: LEDIPASVIR\SOFOSBUVIR
     Indication: HEPATITIS C
     Dosage: 1 DF, UNK
     Route: 048
     Dates: start: 20160123
  5. LACTULOSA [Concomitant]
     Active Substance: LACTULOSE
     Route: 048
  6. MIRTAZAPINA [Concomitant]
     Active Substance: MIRTAZAPINE
  7. SERETIDE [Concomitant]
     Active Substance: FLUTICASONE PROPIONATE\SALMETEROL XINAFOATE
  8. KONAKION [Concomitant]
     Active Substance: PHYTONADIONE
  9. LORMETAZEPAM [Concomitant]
     Active Substance: LORMETAZEPAM
  10. OMEPRAZOL                          /00661201/ [Concomitant]
     Active Substance: OMEPRAZOLE

REACTIONS (1)
  - Osteonecrosis [Recovering/Resolving]

NARRATIVE: CASE EVENT DATE: 20160212
